FAERS Safety Report 17204362 (Version 8)
Quarter: 2024Q1

REPORT INFORMATION
  Report Type: Report from Study
  Country: US (occurrence: US)
  Receive Date: 20191226
  Receipt Date: 20240212
  Transmission Date: 20240410
  Serious: Yes (Other)
  Sender: FDA-Public Use
  Company Number: US-JNJFOC-20190313197

PATIENT
  Age: 52 Year
  Sex: Female
  Weight: 66 kg

DRUGS (6)
  1. SIMPONI [Suspect]
     Active Substance: GOLIMUMAB
     Indication: Colitis ulcerative
     Route: 058
     Dates: start: 20180412, end: 20180912
  2. SIMPONI [Suspect]
     Active Substance: GOLIMUMAB
     Route: 058
  3. PENTASA [Concomitant]
     Active Substance: MESALAMINE
     Route: 065
     Dates: start: 20181217
  4. AZATHIOPRINE [Concomitant]
     Active Substance: AZATHIOPRINE
     Route: 065
     Dates: start: 20180920, end: 20190125
  5. INFLIXIMAB [Concomitant]
     Active Substance: INFLIXIMAB
     Dates: start: 20180920, end: 20181221
  6. VEDOLIZUMAB [Concomitant]
     Active Substance: VEDOLIZUMAB
     Dates: start: 20191219

REACTIONS (1)
  - Invasive ductal breast carcinoma [Not Recovered/Not Resolved]

NARRATIVE: CASE EVENT DATE: 20190125
